FAERS Safety Report 19139134 (Version 2)
Quarter: 2021Q2

REPORT INFORMATION
  Report Type: Spontaneous
  Country: US (occurrence: US)
  Receive Date: 20210415
  Receipt Date: 20210423
  Transmission Date: 20210717
  Serious: Yes (Hospitalization, Other)
  Sender: FDA-Public Use
  Company Number: US-EMCURE PHARMACEUTICALS LTD-2021-EPL-001198

PATIENT
  Age: 71 Year
  Sex: Male
  Weight: 90.7 kg

DRUGS (18)
  1. TYLENOL [Concomitant]
     Active Substance: ACETAMINOPHEN
  2. SPIRONOLACTONE. [Concomitant]
     Active Substance: SPIRONOLACTONE
  3. PHENYLEPHRINE [Concomitant]
     Active Substance: PHENYLEPHRINE HYDROCHLORIDE
     Indication: BLOOD PRESSURE MEASUREMENT
     Dosage: 0.2 MCG/KG/MINUTE
  4. ONDANSETRON [Concomitant]
     Active Substance: ONDANSETRON
     Indication: ANTIEMETIC SUPPORTIVE CARE
     Dosage: 8 MILLIGRAM
  5. METOPROLOL. [Concomitant]
     Active Substance: METOPROLOL
  6. TAMSULOSIN [Concomitant]
     Active Substance: TAMSULOSIN
  7. OXYGEN. [Concomitant]
     Active Substance: OXYGEN
     Indication: OXYGEN THERAPY
     Dosage: UNK
     Route: 055
  8. MAGNESIUM SULFATE. [Concomitant]
     Active Substance: MAGNESIUM SULFATE
  9. LIDOCAINE. [Concomitant]
     Active Substance: LIDOCAINE
     Indication: INDUCTION OF ANAESTHESIA
     Dosage: 100 MILLIGRAM, 1 TOTAL
  10. PHENYLEPHRINE [Concomitant]
     Active Substance: PHENYLEPHRINE HYDROCHLORIDE
     Dosage: SMALL BOLUSES
  11. KETAMINE [Concomitant]
     Active Substance: KETAMINE
     Indication: ANAESTHESIA
     Dosage: 40 MILLIGRAM, 1 TOTAL, IN DIVIDED INJECTIONS
  12. LISINOPRIL. [Suspect]
     Active Substance: LISINOPRIL
     Indication: HYPERTENSION
  13. AMLODIPINE [Concomitant]
     Active Substance: AMLODIPINE BESYLATE
  14. ATORVASTATIN [Concomitant]
     Active Substance: ATORVASTATIN
  15. PROPOFOL. [Concomitant]
     Active Substance: PROPOFOL
     Indication: INDUCTION OF ANAESTHESIA
     Dosage: 2 MILLIGRAM PER KILOGRAM, 1 TOTAL
     Route: 042
  16. APIXABAN [Concomitant]
     Active Substance: APIXABAN
  17. SEVO?URANE [Concomitant]
     Indication: MAINTENANCE OF ANAESTHESIA
     Dosage: 0.8?0.9 AGE?ADJUSTED MINIMUM ALVEOLAR CONCENTRATION OF SEVOFLURANE IN A MIXTURE OF OXYGEN WITH AIR
     Route: 055
  18. OXYGEN. [Concomitant]
     Active Substance: OXYGEN
     Indication: GENERAL ANAESTHESIA
     Dosage: PREOXYGENATION

REACTIONS (2)
  - Macroglossia [Recovered/Resolved]
  - Angioedema [Recovered/Resolved]
